FAERS Safety Report 5793587-8 (Version None)
Quarter: 2008Q2

REPORT INFORMATION
  Report Type: 
  Country: None (occurrence: None)
  Receive Date: 20080627
  Receipt Date: 20080626
  Transmission Date: 20081010
  Serious: Yes (Hospitalization)
  Sender: FDA-Public Use
  Company Number: US-RB-001180-08

PATIENT
  Sex: Male

DRUGS (3)
  1. BUPRENORPHINE HCL [Suspect]
     Dosage: 4-5 IMPLANTABLE RODS
     Route: 059
     Dates: end: 20080501
  2. SUBOXONE [Suspect]
     Dosage: DOSE AND FREQENCY UNKNOWN
     Route: 060
     Dates: end: 20080501
  3. SUBOXONE [Suspect]
     Dosage: DOSE AND FREQUENCY UNKNOWN
     Route: 060
     Dates: start: 20080501

REACTIONS (2)
  - CHEST PAIN [None]
  - SUICIDAL IDEATION [None]
